FAERS Safety Report 10748776 (Version 1)
Quarter: 2015Q1

REPORT INFORMATION
  Report Type: Spontaneous
  Country: US (occurrence: None)
  Receive Date: 20150128
  Receipt Date: 20150128
  Transmission Date: 20150721
  Serious: Yes (Hospitalization)
  Sender: FDA-Public Use
  Company Number: None

PATIENT
  Age: 43 Year
  Sex: Female
  Weight: 58.97 kg

DRUGS (2)
  1. CHANTIX [Suspect]
     Active Substance: VARENICLINE TARTRATE
     Indication: SMOKING CESSATION THERAPY
     Dosage: ONE PILL TWICE DAILY TAKEN BY MOUTH
     Route: 048
     Dates: start: 20110401, end: 20110604
  2. XYREM [Suspect]
     Active Substance: SODIUM OXYBATE
     Indication: NARCOLEPSY
     Dosage: 2 DOSES EVERY 4 HOURS AT BEDTIME TAKEN BY MOUTH
     Route: 048
     Dates: start: 20101001, end: 20110723

REACTIONS (5)
  - Anxiety [None]
  - Incoherent [None]
  - Family stress [None]
  - Drug effect decreased [None]
  - Speech disorder [None]

NARRATIVE: CASE EVENT DATE: 20110523
